FAERS Safety Report 17479245 (Version 1)
Quarter: 2020Q1

REPORT INFORMATION
  Report Type: Report from Study
  Country: GB (occurrence: GB)
  Receive Date: 20200228
  Receipt Date: 20200228
  Transmission Date: 20200409
  Serious: Yes (Other)
  Sender: FDA-Public Use
  Company Number: GB-JNJFOC-20191143281

PATIENT
  Sex: Female

DRUGS (1)
  1. STELARA [Suspect]
     Active Substance: USTEKINUMAB
     Indication: PSORIASIS
     Route: 058
     Dates: start: 201310

REACTIONS (6)
  - Sinusitis [Unknown]
  - Urinary tract infection [Unknown]
  - Lethargy [Unknown]
  - Fatigue [Unknown]
  - Lower respiratory tract infection [Unknown]
  - Eye infection [Unknown]
